FAERS Safety Report 10505252 (Version 3)
Quarter: 2014Q4

REPORT INFORMATION
  Report Type: Report from Study
  Country: US (occurrence: US)
  Receive Date: 20141008
  Receipt Date: 20141012
  Transmission Date: 20150528
  Serious: Yes (Hospitalization, Other)
  Sender: FDA-Public Use
  Company Number: US-BRISTOL-MYERS SQUIBB COMPANY-19147826

PATIENT
  Age: 55 Year
  Sex: Male
  Weight: 96.6 kg

DRUGS (14)
  1. LEVOTHROID [Concomitant]
     Active Substance: LEVOTHYROXINE SODIUM
     Route: 048
  2. TRIAMCINOLONE [Concomitant]
     Active Substance: TRIAMCINOLONE
     Dosage: APPLICATION.
     Route: 061
  3. VEMURAFENIB [Suspect]
     Active Substance: VEMURAFENIB
     Indication: MALIGNANT MELANOMA
     Dosage: 26APR13 TO 10MAY13:960 MG?17MAY13-07JUN13-720MG BID.ORAL
     Route: 048
     Dates: start: 20130426
  4. IPILIMUMAB [Suspect]
     Active Substance: IPILIMUMAB
     Indication: MALIGNANT MELANOMA
     Dosage: 10 MG/KG X2
     Route: 042
     Dates: start: 20130614, end: 20130705
  5. PRILOSEC [Concomitant]
     Active Substance: OMEPRAZOLE MAGNESIUM
     Dosage: CAPSULES.
     Route: 048
  6. PROCHLORPERAZINE MALEATE. [Concomitant]
     Active Substance: PROCHLORPERAZINE MALEATE
     Indication: NAUSEA
     Dosage: 1 IN EVERY SIX HOURS PRN.
     Route: 048
  7. CEFAZOLIN [Concomitant]
     Active Substance: CEFAZOLIN
  8. DOXYCYCLINE. [Concomitant]
     Active Substance: DOXYCYCLINE
     Route: 048
  9. FISH OIL [Concomitant]
     Active Substance: FISH OIL
     Dosage: CAPSULES.?FOUR 300MG CAPSULES QD.ORALLY.
     Route: 048
  10. LOTEMAX [Concomitant]
     Active Substance: LOTEPREDNOL ETABONATE
     Dosage: OPTHALMIC SOLN.?1DF=1 DROP. BOTH EYES QID.
     Route: 047
  11. TYLENOL EXTRA STRENGTH [Concomitant]
     Active Substance: ACETAMINOPHEN
     Indication: PAIN
     Dosage: 1 IN EVERY 6 HOURS PRN.
     Route: 048
  12. LIDOCAINE. [Concomitant]
     Active Substance: LIDOCAINE
  13. MARCAINE [Concomitant]
     Active Substance: BUPIVACAINE HYDROCHLORIDE
  14. VITAMIN D3 [Concomitant]
     Active Substance: CHOLECALCIFEROL
     Dosage: 1DF=2000 UNITS.
     Route: 048

REACTIONS (2)
  - Wound [Recovered/Resolved]
  - Squamous cell carcinoma of skin [Recovered/Resolved]

NARRATIVE: CASE EVENT DATE: 20130708
